FAERS Safety Report 7550226-3 (Version None)
Quarter: 2011Q2

REPORT INFORMATION
  Report Type: 
  Country: None (occurrence: None)
  Receive Date: 20110615
  Receipt Date: 20110602
  Transmission Date: 20111010
  Serious: Yes (Hospitalization)
  Sender: FDA-Public Use
  Company Number: JP-UCBSA-014653

PATIENT
  Sex: Female

DRUGS (25)
  1. LANSOPRAZOLE [Concomitant]
     Dates: start: 20070129
  2. CARBAMAZEPINE [Concomitant]
     Dates: start: 20070201
  3. FERROUS SULFATE TAB [Concomitant]
     Dates: start: 20090820
  4. ATORVASTATIN CALCIUM [Concomitant]
     Dates: start: 20060406
  5. SERTRALINE HYDROCHLORIDE [Concomitant]
     Dates: start: 20071121
  6. SENNOSIDE [Concomitant]
     Dates: start: 20100527
  7. TRIAZOLAM [Concomitant]
     Dates: start: 20070221
  8. CERTOLIZUMAB PEGOL [Suspect]
     Dosage: C870-041
     Route: 058
     Dates: start: 20090101, end: 20091015
  9. ETIZOLAM [Concomitant]
     Dates: start: 20070201
  10. BERAPROST SODIUM [Concomitant]
     Dates: start: 20080213
  11. LITHIUM CARBONATE [Concomitant]
     Dates: start: 20080507
  12. KETOPROFEN [Concomitant]
     Dosage: QS
     Dates: start: 20080806
  13. KETOPROFEN [Concomitant]
     Dosage: QS
     Dates: start: 20090423
  14. CERTOLIZUMAB PEGOL [Suspect]
     Route: 058
     Dates: start: 20091029
  15. CERTOLIZUMAB PEGOL [Suspect]
     Indication: RHEUMATOID ARTHRITIS
     Dosage: C870-041
     Route: 058
     Dates: start: 20090416, end: 20090101
  16. SULPIRIDE [Concomitant]
     Dates: start: 20061221
  17. SOFALCONE [Concomitant]
     Dates: start: 20100415
  18. AN EXTRACT OBTAINED FROM INFLAMMATORY RABBIT SKIN INOCULA [Concomitant]
     Dosage: 3 TABLETS DAILY
     Dates: start: 20080806
  19. MILNACIPRAN HYDROCHLORIDE [Concomitant]
     Dates: start: 20061221
  20. MECOBALAMIN [Concomitant]
     Dates: start: 20060614
  21. IMIDAPRIL HYDROCHLORIDE [Concomitant]
     Dates: start: 20090806
  22. FOLIC ACID [Concomitant]
     Dates: start: 20081224
  23. MELOXICAM [Concomitant]
     Dates: start: 20080806
  24. METHOTREXATE [Concomitant]
     Dosage: 8MG(4MG-2MG-2MG)/WEEK
     Dates: start: 20081222
  25. KETOPROFEN [Concomitant]
     Dosage: QS
     Dates: start: 20090325

REACTIONS (2)
  - DEMENTIA [None]
  - RHEUMATOID ARTHRITIS [None]
